FAERS Safety Report 8075802-3 (Version None)
Quarter: 2012Q1

REPORT INFORMATION
  Report Type: 
  Country: None (occurrence: None)
  Receive Date: 20120127
  Receipt Date: 20120116
  Transmission Date: 20120608
  Serious: Yes (Other)
  Sender: FDA-Public Use
  Company Number: US-ELI_LILLY_AND_COMPANY-US201008005819

PATIENT
  Sex: Female

DRUGS (12)
  1. METOPROLOL TARTRATE [Concomitant]
     Indication: BLOOD PRESSURE
  2. EVISTA [Suspect]
     Indication: OSTEOPOROSIS
     Dosage: 60 MG, DAILY (1/D)
  3. SPIRONOLACTONE W/ HYDROCHLOROTHIAZIDE [Concomitant]
     Indication: BLOOD PRESSURE
  4. FORTEO [Suspect]
     Dosage: 20 UG, QD
  5. MIRTAZAPINE [Concomitant]
  6. FORTEO [Suspect]
     Dosage: 20 UG, DAILY (1/D)
  7. FORTEO [Suspect]
     Dosage: 20 UG, DAILY (1/D)
     Route: 065
  8. FORTEO [Suspect]
     Dosage: 20 UG, DAILY (1/D)
  9. FORTEO [Suspect]
     Dosage: 20 UG, DAILY (1/D)
  10. NAMENDA [Concomitant]
  11. FORTEO [Suspect]
     Indication: OSTEOPOROSIS
     Dosage: 20 UG, DAILY (1/D)
  12. FORTEO [Suspect]
     Dosage: 20 UG, DAILY (1/D)

REACTIONS (16)
  - DYSSTASIA [None]
  - INJECTION SITE HAEMATOMA [None]
  - HYPOAESTHESIA [None]
  - INJECTION SITE STREAKING [None]
  - INSOMNIA [None]
  - GAIT DISTURBANCE [None]
  - INJECTION SITE PRURITUS [None]
  - DIZZINESS [None]
  - HYDROCEPHALUS [None]
  - ASTHENIA [None]
  - TREMOR [None]
  - INJECTION SITE ERYTHEMA [None]
  - MEMORY IMPAIRMENT [None]
  - INJECTION SITE PAIN [None]
  - DRUG INEFFECTIVE [None]
  - BLOOD CALCIUM INCREASED [None]
